FAERS Safety Report 11050250 (Version 2)
Quarter: 2015Q2

REPORT INFORMATION
  Report Type: Spontaneous
  Country: US (occurrence: US)
  Receive Date: 20150421
  Receipt Date: 20150422
  Transmission Date: 20150821
  Serious: No
  Sender: FDA-Public Use
  Company Number: US-009507513-1504USA017136

PATIENT

DRUGS (1)
  1. NEXPLANON [Suspect]
     Active Substance: ETONOGESTREL
     Dosage: 1 ROD /3 YEARS
     Route: 059

REACTIONS (3)
  - No adverse event [Unknown]
  - Needle issue [Unknown]
  - Device difficult to use [Recovered/Resolved]
